FAERS Safety Report 14194124 (Version 2)
Quarter: 2017Q4

REPORT INFORMATION
  Report Type: Spontaneous
  Country: HU (occurrence: HU)
  Receive Date: 20171116
  Receipt Date: 20171120
  Transmission Date: 20180321
  Serious: Yes (Death, Hospitalization, Other)
  Sender: FDA-Public Use
  Company Number: HU-B.I. PHARMACEUTICALS,INC./RIDGEFIELD-2017-BI-061167

PATIENT
  Age: 66 Year
  Sex: Female

DRUGS (2)
  1. PRADAXA [Suspect]
     Active Substance: DABIGATRAN ETEXILATE MESYLATE
     Indication: ATRIAL FIBRILLATION
     Route: 065
  2. LITHIUM CARBONATE. [Concomitant]
     Active Substance: LITHIUM CARBONATE
     Indication: HYPERTHYROIDISM
     Route: 065

REACTIONS (5)
  - Intraventricular haemorrhage [Unknown]
  - Neurosurgery [Unknown]
  - Subdural haemorrhage [Unknown]
  - Coma [Fatal]
  - Seizure [Unknown]
